FAERS Safety Report 4480825-7 (Version None)
Quarter: 2004Q4

REPORT INFORMATION
  Report Type: 
  Country: None (occurrence: None)
  Receive Date: 20041020
  Receipt Date: 20041020
  Transmission Date: 20050328
  Serious: Yes (Other)
  Sender: FDA-Public Use
  Company Number: None

PATIENT
  Age: 57 Year
  Sex: Female
  Weight: 95.45 kg

DRUGS (1)
  1. VANCOMYCIN [Suspect]
     Indication: OPEN WOUND
     Dosage: 500 MG Q12HS IV
     Route: 042
     Dates: start: 20041012, end: 20041018

REACTIONS (2)
  - HYPOACUSIS [None]
  - TINNITUS [None]
